FAERS Safety Report 15646715 (Version 1)
Quarter: 2018Q4

REPORT INFORMATION
  Report Type: Spontaneous
  Country: GR (occurrence: GR)
  Receive Date: 20181122
  Receipt Date: 20181122
  Transmission Date: 20190205
  Serious: Yes (Other)
  Sender: FDA-Public Use
  Company Number: GR-ROCHE-2213575

PATIENT
  Age: 55 Year
  Sex: Female

DRUGS (1)
  1. VISMODEGIB. [Suspect]
     Active Substance: VISMODEGIB
     Indication: BASAL CELL CARCINOMA
     Dosage: 2ND CYCLE OF VISMODEGIB
     Route: 065

REACTIONS (4)
  - Ill-defined disorder [Unknown]
  - Muscle fatigue [Unknown]
  - Alopecia [Unknown]
  - Dysgeusia [Unknown]
